FAERS Safety Report 7553641-7 (Version None)
Quarter: 2011Q2

REPORT INFORMATION
  Report Type: 
  Country: None (occurrence: None)
  Receive Date: 20110617
  Receipt Date: 20100722
  Transmission Date: 20111010
  Serious: No
  Sender: FDA-Public Use
  Company Number: US-MYLANLABS-2010S1013393

PATIENT
  Age: 51 Year
  Sex: Male
  Weight: 90.72 kg

DRUGS (1)
  1. OMEPRAZOLE [Suspect]
     Indication: ABDOMINAL PAIN
     Route: 048
     Dates: start: 20100720, end: 20100721

REACTIONS (6)
  - GENERALISED ERYTHEMA [None]
  - EYE SWELLING [None]
  - SWELLING FACE [None]
  - PRURITUS [None]
  - HYPOAESTHESIA FACIAL [None]
  - BURNING SENSATION [None]
